FAERS Safety Report 10512537 (Version 1)
Quarter: 2014Q4

REPORT INFORMATION
  Report Type: Spontaneous
  Country: US (occurrence: US)
  Receive Date: 20141011
  Receipt Date: 20141011
  Transmission Date: 20150528
  Serious: No
  Sender: FDA-Public Use
  Company Number: US-ASTRAZENECA-2014SE69718

PATIENT
  Age: 62 Year
  Sex: Female
  Weight: 76.7 kg

DRUGS (7)
  1. NEXIUM [Suspect]
     Active Substance: ESOMEPRAZOLE MAGNESIUM
     Indication: GASTROOESOPHAGEAL REFLUX DISEASE
     Route: 048
     Dates: start: 2010
  2. TOPROL XL [Suspect]
     Active Substance: METOPROLOL SUCCINATE
     Indication: HYPERTENSION
     Dosage: UNKNOWN UNK
     Route: 048
  3. SINGULAR GENERIC [Concomitant]
     Indication: MULTIPLE ALLERGIES
     Route: 048
     Dates: start: 201408
  4. HYDROCHLORTHIAZIDE [Concomitant]
     Active Substance: HYDROCHLOROTHIAZIDE
     Indication: HYPERTENSION
     Route: 048
     Dates: start: 2012
  5. WELBUTRIN GENERIC [Concomitant]
     Indication: DEPRESSION
     Route: 048
     Dates: start: 2011
  6. SINGULAR GENERIC [Concomitant]
     Indication: WHEEZING
     Route: 048
     Dates: start: 201408
  7. BYSTOLIC [Concomitant]
     Active Substance: NEBIVOLOL HYDROCHLORIDE
     Indication: HYPERTENSION
     Route: 048
     Dates: start: 2012

REACTIONS (15)
  - Gastrointestinal inflammation [Unknown]
  - Hypersensitivity [Unknown]
  - Depression [Unknown]
  - Viral infection [Recovered/Resolved]
  - Cough [Recovered/Resolved]
  - Hypertension [Unknown]
  - Wheezing [Unknown]
  - Drug dose omission [Unknown]
  - Confusional state [Unknown]
  - Dyspepsia [Unknown]
  - Gastrooesophageal reflux disease [Unknown]
  - Abdominal pain [Unknown]
  - Blood pressure inadequately controlled [Unknown]
  - Amnesia [Unknown]
  - Cognitive disorder [Unknown]

NARRATIVE: CASE EVENT DATE: 2007
